FAERS Safety Report 8763395 (Version 1)
Quarter: 2012Q4

REPORT INFORMATION
  Report Type: 
  Country: ZA (occurrence: ZA)
  Receive Date: 20120830
  Receipt Date: 20120830
  Transmission Date: 20130627
  Serious: Yes (Hospitalization)
  Sender: FDA-Public Use
  Company Number: ZA-ELI_LILLY_AND_COMPANY-ZA201208006944

PATIENT
  Age: 60 Year
  Sex: Female

DRUGS (4)
  1. HUMALOG [Suspect]
     Indication: DIABETES MELLITUS
     Dosage: 36 u, each morning
     Route: 058
     Dates: start: 2009
  2. HUMALOG [Suspect]
     Dosage: 34 u, each evening
     Route: 058
     Dates: start: 2009
  3. ANTIHYPERTENSIVES [Concomitant]
     Dosage: UNK, qd
     Route: 048
     Dates: start: 201208
  4. CARDIAC THERAPY [Concomitant]
     Indication: CARDIAC DISORDER
     Dosage: UNK, qd
     Route: 048

REACTIONS (2)
  - Abdominal distension [Unknown]
  - Anxiety [Unknown]
